FAERS Safety Report 5997409-1 (Version None)
Quarter: 2008Q4

REPORT INFORMATION
  Report Type: 
  Country: None (occurrence: None)
  Receive Date: 20081212
  Receipt Date: 20081111
  Transmission Date: 20090506
  Serious: No
  Sender: FDA-Public Use
  Company Number: US-ABBOTT-08P-163-0487292-00

PATIENT
  Sex: Male
  Weight: 81.266 kg

DRUGS (4)
  1. HUMIRA [Suspect]
     Indication: CROHN'S DISEASE
     Route: 058
     Dates: start: 20081111
  2. HUMIRA [Suspect]
     Indication: ANKYLOSING SPONDYLITIS
  3. LISINOPRIL [Concomitant]
     Indication: HYPERTENSION
     Dosage: 20MG/25MG QD
     Route: 048
  4. VICODIN [Concomitant]
     Indication: PAIN

REACTIONS (1)
  - INJECTION SITE HAEMORRHAGE [None]
